FAERS Safety Report 6827256-X (Version None)
Quarter: 2010Q3

REPORT INFORMATION
  Report Type: 
  Country: None (occurrence: None)
  Receive Date: 20100709
  Receipt Date: 20100707
  Transmission Date: 20110219
  Serious: Yes (Hospitalization)
  Sender: FDA-Public Use
  Company Number: US-GILEAD-2010-0030158

PATIENT
  Sex: Female
  Weight: 62.652 kg

DRUGS (12)
  1. LETAIRIS [Suspect]
     Indication: PULMONARY ARTERIAL HYPERTENSION
     Route: 048
     Dates: start: 20100610
  2. FUROSEMIDE [Concomitant]
  3. PULMICORT [Concomitant]
  4. BROVANA [Concomitant]
  5. ASPIRIN [Concomitant]
  6. PREDNISONE [Concomitant]
  7. HYDROCORTISONE [Concomitant]
  8. ALPRAZOLAM [Concomitant]
  9. CLARITIN [Concomitant]
  10. AFRIN [Concomitant]
  11. ZANTAC [Concomitant]
  12. MAXI-VITE [Concomitant]

REACTIONS (1)
  - PNEUMONIA [None]
